FAERS Safety Report 16338280 (Version 2)
Quarter: 2019Q2

REPORT INFORMATION
  Report Type: Report from Study
  Country: AU (occurrence: AU)
  Receive Date: 20190521
  Receipt Date: 20190523
  Transmission Date: 20190711
  Serious: Yes (Hospitalization)
  Sender: FDA-Public Use
  Company Number: AU-JNJFOC-20190314568

PATIENT
  Sex: Female

DRUGS (2)
  1. STELARA [Suspect]
     Active Substance: USTEKINUMAB
     Indication: CROHN^S DISEASE
     Route: 058
     Dates: start: 20190509
  2. STELARA [Suspect]
     Active Substance: USTEKINUMAB
     Indication: CROHN^S DISEASE
     Route: 058
     Dates: start: 20190115, end: 20190315

REACTIONS (7)
  - Diarrhoea [Recovering/Resolving]
  - Hospitalisation [Unknown]
  - Constipation [Unknown]
  - Colonoscopy [Unknown]
  - Infection [Unknown]
  - Ligament sprain [Unknown]
  - Bladder operation [Recovering/Resolving]

NARRATIVE: CASE EVENT DATE: 2019
